FAERS Safety Report 9190171 (Version 1)
Quarter: 2013Q1

REPORT INFORMATION
  Report Type: Spontaneous
  Country: US (occurrence: None)
  Receive Date: 20130325
  Receipt Date: 20130325
  Transmission Date: 20140127
  Serious: No
  Sender: FDA-Public Use
  Company Number: None

PATIENT
  Age: 86 Year
  Sex: Male
  Weight: 89.81 kg

DRUGS (1)
  1. DONEPEZIL [Suspect]
     Dosage: 1 PILL EVERY EVENING
     Dates: start: 20130308, end: 20130312

REACTIONS (10)
  - Fatigue [None]
  - Asthenia [None]
  - Nausea [None]
  - Vomiting [None]
  - Abnormal dreams [None]
  - Somnambulism [None]
  - Myalgia [None]
  - Decreased appetite [None]
  - Confusional state [None]
  - Malaise [None]
